FAERS Safety Report 7570334-0 (Version None)
Quarter: 2011Q2

REPORT INFORMATION
  Report Type: 
  Country: None (occurrence: None)
  Receive Date: 20110620
  Receipt Date: 20110614
  Transmission Date: 20111010
  Serious: Yes (Other)
  Sender: FDA-Public Use
  Company Number: 2011SP027619

PATIENT
  Age: 19 Year
  Sex: Female

DRUGS (1)
  1. NEXPLANON [Suspect]
     Indication: PRODUCT USED FOR UNKNOWN INDICATION
     Dosage: 68 MG;SBDE
     Route: 059
     Dates: start: 20110210, end: 20110602

REACTIONS (3)
  - OVARIAN CYST TORSION [None]
  - FALLOPIAN TUBE CYST [None]
  - POST PROCEDURAL COMPLICATION [None]
